FAERS Safety Report 6517147-6 (Version None)
Quarter: 2009Q4

REPORT INFORMATION
  Report Type: 
  Country: None (occurrence: None)
  Receive Date: 20091223
  Receipt Date: 20091217
  Transmission Date: 20100525
  Serious: Yes (Other)
  Sender: FDA-Public Use
  Company Number: BR-ABBOTT-09P-020-0615046-00

PATIENT
  Sex: Female
  Weight: 62 kg

DRUGS (6)
  1. HUMIRA [Suspect]
     Indication: PSORIATIC ARTHROPATHY
     Route: 058
     Dates: start: 20080101, end: 20091118
  2. HUMIRA [Suspect]
     Indication: PSORIASIS
  3. LEFLUNOMIDE [Concomitant]
     Indication: PSORIASIS
     Route: 048
     Dates: end: 20091001
  4. NIMESULIDE [Concomitant]
     Indication: ANTIINFLAMMATORY THERAPY
     Route: 048
  5. DIPYRONE [Concomitant]
     Indication: ANTIINFLAMMATORY THERAPY
     Route: 048
  6. GABAPENTIN [Concomitant]
     Indication: PAIN
     Route: 048
     Dates: start: 20090701

REACTIONS (3)
  - PSORIASIS [None]
  - UTERINE ENLARGEMENT [None]
  - UTERINE LEIOMYOMA [None]
